FAERS Safety Report 16608082 (Version 1)
Quarter: 2019Q3

REPORT INFORMATION
  Report Type: Spontaneous
  Country: US (occurrence: US)
  Receive Date: 20190606
  Receipt Date: 20190606
  Transmission Date: 20191004
  Serious: Yes (Hospitalization)
  Sender: FDA-Public Use
  Company Number: None

PATIENT
  Age: 19 Year
  Sex: Female
  Weight: 74.9 kg

DRUGS (2)
  1. AZACITIDINE. [Suspect]
     Active Substance: AZACITIDINE
  2. PEMBROLIZUMAB. [Suspect]
     Active Substance: PEMBROLIZUMAB

REACTIONS (6)
  - Haematoma [None]
  - Procedural pain [None]
  - Pelvic pain [None]
  - Febrile neutropenia [None]
  - Abscess [None]
  - Biopsy bone marrow [None]

NARRATIVE: CASE EVENT DATE: 20190530
